FAERS Safety Report 7585410-6 (Version None)
Quarter: 2011Q2

REPORT INFORMATION
  Report Type: 
  Country: None (occurrence: None)
  Receive Date: 20110628
  Receipt Date: 20110628
  Transmission Date: 20111010
  Serious: Yes (Other)
  Sender: FDA-Public Use
  Company Number: None

PATIENT
  Age: 54 Year
  Sex: Male
  Weight: 102.5129 kg

DRUGS (1)
  1. PRISTIQ [Suspect]
     Indication: DEPRESSION
     Dosage: 100MG DAILY PO
     Route: 048
     Dates: start: 20080401, end: 20110624

REACTIONS (6)
  - INSOMNIA [None]
  - TINNITUS [None]
  - DRUG WITHDRAWAL SYNDROME [None]
  - HEARING IMPAIRED [None]
  - HYPERACUSIS [None]
  - DIZZINESS [None]
